FAERS Safety Report 17144558 (Version 1)
Quarter: 2019Q4

REPORT INFORMATION
  Report Type: Spontaneous
  Country: FR (occurrence: FR)
  Receive Date: 20191212
  Receipt Date: 20191212
  Transmission Date: 20200122
  Serious: Yes (Hospitalization, Other)
  Sender: FDA-Public Use
  Company Number: FR-SA-2019SA189235

PATIENT
  Age: 88 Year
  Sex: Female
  Weight: 52 kg

DRUGS (5)
  1. LOVENOX [Suspect]
     Active Substance: ENOXAPARIN SODIUM
     Indication: THROMBOSIS PROPHYLAXIS
     Dosage: UNK UNK, UNK
     Route: 058
     Dates: start: 20190521
  2. VIALEBEX [Suspect]
     Active Substance: ALBUMIN HUMAN
     Indication: STARVATION
     Dosage: COURSE OF 3 INFUSIONS
     Route: 041
     Dates: start: 20190530, end: 20190606
  3. CIPROFLOXACIN HYDROCHLORIDE. [Suspect]
     Active Substance: CIPROFLOXACIN HYDROCHLORIDE
     Indication: URINARY TRACT INFECTION
     Dosage: UNK UNK, UNK
     Route: 048
     Dates: start: 20190523, end: 20190606
  4. PANTOPRAZOLE [Suspect]
     Active Substance: PANTOPRAZOLE
     Indication: GASTRIC ULCER
     Dosage: 80 MG, QD
     Route: 048
  5. LINEZOLID. [Suspect]
     Active Substance: LINEZOLID
     Indication: URINARY TRACT INFECTION
     Dosage: UNK UNK, UNK
     Route: 048
     Dates: start: 20190523, end: 20190606

REACTIONS (2)
  - Thrombocytopenia [Not Recovered/Not Resolved]
  - Leukopenia [Not Recovered/Not Resolved]

NARRATIVE: CASE EVENT DATE: 20190606
